FAERS Safety Report 13480745 (Version 4)
Quarter: 2018Q1

REPORT INFORMATION
  Report Type: Report from Study
  Country: US (occurrence: US)
  Receive Date: 20170424
  Receipt Date: 20180105
  Transmission Date: 20180508
  Serious: No
  Sender: FDA-Public Use
  Company Number: US-AMGEN-USASL2016074850

PATIENT
  Age: 60 Year
  Sex: Female

DRUGS (1)
  1. REPATHA [Suspect]
     Active Substance: EVOLOCUMAB
     Indication: LOW DENSITY LIPOPROTEIN INCREASED
     Dosage: 140 MG, Q2WK
     Route: 065

REACTIONS (6)
  - Abdominal distension [Unknown]
  - Food intolerance [Recovered/Resolved]
  - Pain [Unknown]
  - Gastroenteritis [Recovered/Resolved]
  - Eructation [Recovered/Resolved]
  - Fatigue [Unknown]
